FAERS Safety Report 16281884 (Version 1)
Quarter: 2019Q2

REPORT INFORMATION
  Report Type: Spontaneous
  Country: US (occurrence: US)
  Receive Date: 20190507
  Receipt Date: 20190507
  Transmission Date: 20190711
  Serious: Yes (Other)
  Sender: FDA-Public Use
  Company Number: US-ZYDUS-036225

PATIENT
  Sex: Female

DRUGS (6)
  1. ESTROGENS CONJUGATED [Concomitant]
     Active Substance: ESTROGENS, CONJUGATED
     Indication: HOT FLUSH
  2. LABETALOL [Concomitant]
     Active Substance: LABETALOL\LABETALOL HYDROCHLORIDE
     Indication: HYPERTENSION
     Dates: start: 2003
  3. ALPRAZOLAM. [Concomitant]
     Active Substance: ALPRAZOLAM
     Indication: VERTIGO
  4. CLONAZEPAM. [Concomitant]
     Active Substance: CLONAZEPAM
     Indication: NERVE INJURY
  5. POTASSIUM [Suspect]
     Active Substance: POTASSIUM
     Indication: MINERAL SUPPLEMENTATION
     Route: 048
  6. FUROSEMIDE. [Concomitant]
     Active Substance: FUROSEMIDE
     Indication: HYPERTENSION

REACTIONS (10)
  - Feeling hot [Unknown]
  - Blindness [Unknown]
  - Nervousness [Unknown]
  - Body temperature fluctuation [Unknown]
  - Feeling abnormal [Unknown]
  - Telangiectasia [Unknown]
  - Retinal injury [Unknown]
  - Overweight [Unknown]
  - Cerebrovascular accident [Unknown]
  - Visual impairment [Unknown]

NARRATIVE: CASE EVENT DATE: 2002
